FAERS Safety Report 5196781-2 (Version None)
Quarter: 2006Q4

REPORT INFORMATION
  Report Type: 
  Country: None (occurrence: None)
  Receive Date: 20061227
  Receipt Date: 20061219
  Transmission Date: 20070319
  Serious: Yes (Hospitalization, Disabling)
  Sender: FDA-Public Use
  Company Number: 676

PATIENT
  Sex: Male

DRUGS (1)
  1. AMNESTEEM [Suspect]

REACTIONS (12)
  - AFFECT LABILITY [None]
  - ANGER [None]
  - COLITIS [None]
  - COLITIS ULCERATIVE [None]
  - CROHN'S DISEASE [None]
  - DEPRESSION [None]
  - LIP DRY [None]
  - LIP HAEMORRHAGE [None]
  - NAUSEA [None]
  - RECTAL HAEMORRHAGE [None]
  - VOMITING [None]
  - WEIGHT DECREASED [None]
